FAERS Safety Report 5179890-3 (Version None)
Quarter: 2006Q4

REPORT INFORMATION
  Report Type: 
  Country: None (occurrence: None)
  Receive Date: 20061211
  Receipt Date: 20061127
  Transmission Date: 20070319
  Serious: Yes (Other)
  Sender: FDA-Public Use
  Company Number: 061130-0001077

PATIENT
  Age: 1 Day

DRUGS (4)
  1. INDOMETHACIN [Suspect]
     Indication: DRUG EXPOSURE DURING PREGNANCY
  2. TERBUTALINE SULFATE [Suspect]
     Indication: DRUG EXPOSURE DURING PREGNANCY
     Dosage: 5 MG; Q4H
  3. TERBUTALINE SULFATE [Concomitant]
  4. MAGNESIUM SULFATE [Concomitant]

REACTIONS (8)
  - BRADYCARDIA FOETAL [None]
  - CAESAREAN SECTION [None]
  - DRUG EXPOSURE DURING PREGNANCY [None]
  - DUCTUS ARTERIOSUS PREMATURE CLOSURE [None]
  - FOETAL MOVEMENTS DECREASED [None]
  - INTRA-UTERINE DEATH [None]
  - PLACENTAL DISORDER [None]
  - PLACENTAL TRANSFUSION SYNDROME [None]
